FAERS Safety Report 8092106-3 (Version None)
Quarter: 2012Q1

REPORT INFORMATION
  Report Type: 
  Country: None (occurrence: None)
  Receive Date: 20120131
  Receipt Date: 20120119
  Transmission Date: 20120608
  Serious: Yes (Hospitalization)
  Sender: FDA-Public Use
  Company Number: US-UCBSA-049956

PATIENT
  Age: 53 Year
  Sex: Female

DRUGS (1)
  1. KEPPRA XR [Suspect]
     Dosage: 500 MG

REACTIONS (1)
  - CEREBROVASCULAR ACCIDENT [None]
